FAERS Safety Report 6395492-5 (Version None)
Quarter: 2009Q3

REPORT INFORMATION
  Report Type: 
  Country: None (occurrence: None)
  Receive Date: 20090923
  Receipt Date: 20090915
  Transmission Date: 20100115
  Serious: Yes (Hospitalization)
  Sender: FDA-Public Use
  Company Number: AEUSA200900241

PATIENT
  Age: 5 Year
  Sex: Male
  Weight: 20.2 kg

DRUGS (9)
  1. GAMUNEX [Suspect]
     Indication: PRIMARY IMMUNODEFICIENCY SYNDROME
     Dosage: 9 ML;1X;IV
     Route: 042
     Dates: start: 20090812, end: 20090812
  2. GAMMAGARD [Suspect]
     Indication: AMINO ACID METABOLISM DISORDER
     Dosage: 32 ML;1X;IV
     Route: 042
     Dates: start: 20090727, end: 20090727
  3. GAMMAGARD [Suspect]
     Indication: PRIMARY IMMUNODEFICIENCY SYNDROME
     Dosage: 32 ML;1X;IV
     Route: 042
     Dates: start: 20090727, end: 20090727
  4. PRILOSEC [Concomitant]
  5. AMOXICILLIN [Concomitant]
  6. FLOVENT [Concomitant]
  7. ATARAX [Concomitant]
  8. TYLENOL (CAPLET) [Concomitant]
  9. ZANTAC [Concomitant]

REACTIONS (12)
  - AMINO ACID LEVEL INCREASED [None]
  - FEELING ABNORMAL [None]
  - HEART RATE INCREASED [None]
  - HYPERSENSITIVITY [None]
  - HYPOTENSION [None]
  - INFUSION RELATED REACTION [None]
  - LETHARGY [None]
  - MENTAL STATUS CHANGES [None]
  - PYREXIA [None]
  - RASH [None]
  - RASH GENERALISED [None]
  - VOMITING [None]
